FAERS Safety Report 17630346 (Version 1)
Quarter: 2020Q2

REPORT INFORMATION
  Report Type: Spontaneous
  Country: US (occurrence: US)
  Receive Date: 20200401
  Receipt Date: 20200401
  Transmission Date: 20200713
  Serious: Yes (Life-Threatening)
  Sender: FDA-Public Use
  Company Number: None

PATIENT
  Age: 41 Year
  Sex: Female
  Weight: 86 kg

DRUGS (9)
  1. PHENYEPHRINE [Concomitant]
     Active Substance: PHENYLEPHRINE HYDROCHLORIDE
  2. PROTAMINE SULFATE. [Suspect]
     Active Substance: PROTAMINE SULFATE
     Indication: PROCOAGULANT THERAPY
     Dosage: ?          OTHER FREQUENCY:X1;OTHER ROUTE:IV?
     Route: 042
     Dates: start: 20200319, end: 20200319
  3. CARDIOPLEGIC SOLUTION [Concomitant]
     Active Substance: CALCIUM CHLORIDE\MAGNESIUM CHLORIDE\POTASSIUM CHLORIDE\SODIUM CHLORIDE
  4. MIDAZOLAM. [Concomitant]
     Active Substance: MIDAZOLAM
  5. NOREPINEPHINE [Concomitant]
  6. CALCIUM CHLORIDE. [Concomitant]
     Active Substance: CALCIUM CHLORIDE
  7. EPINEPHRINE. [Concomitant]
     Active Substance: EPINEPHRINE
  8. AMINOCAPROIC ACID. [Concomitant]
     Active Substance: AMINOCAPROIC ACID
  9. VECURONIUM [Concomitant]
     Active Substance: VECURONIUM BROMIDE

REACTIONS (1)
  - Hypotension [None]

NARRATIVE: CASE EVENT DATE: 20200319
